FAERS Safety Report 7671689-9 (Version None)
Quarter: 2011Q3

REPORT INFORMATION
  Report Type: 
  Country: None (occurrence: None)
  Receive Date: 20110809
  Receipt Date: 20110805
  Transmission Date: 20111222
  Serious: Yes (Death)
  Sender: FDA-Public Use
  Company Number: CHPA2011BR10528

PATIENT
  Sex: Female

DRUGS (1)
  1. CIBALENAA [Suspect]
     Indication: MIGRAINE

REACTIONS (2)
  - CARDIAC DISORDER [None]
  - RENAL DISORDER [None]
